FAERS Safety Report 4286772-8 (Version None)
Quarter: 2004Q1

REPORT INFORMATION
  Report Type: 
  Country: None (occurrence: None)
  Receive Date: 20040206
  Receipt Date: 20010405
  Transmission Date: 20041129
  Serious: Yes (Death)
  Sender: FDA-Public Use
  Company Number: BE-ROCHE-258230

PATIENT
  Age: 32 Year
  Sex: Male

DRUGS (7)
  1. PEG-INTERFERON ALFA 2A (RO 25-8310) [Suspect]
     Route: 058
     Dates: start: 20010123, end: 20010321
  2. PEG-INTERFERON ALFA 2A (RO 25-8310) [Suspect]
     Route: 058
     Dates: start: 20001205, end: 20010122
  3. RIBAVIRIN [Suspect]
     Route: 048
     Dates: start: 20001205, end: 20010321
  4. NOZINAN [Suspect]
     Indication: PARANOIA
     Route: 048
     Dates: end: 20010320
  5. ZYPREXA [Suspect]
     Indication: PARANOIA
     Route: 048
     Dates: start: 20010123, end: 20010320
  6. ZYPREXA [Suspect]
     Route: 048
     Dates: end: 20001128
  7. STAURODORM [Suspect]
     Route: 048
     Dates: end: 20010320

REACTIONS (4)
  - DEPRESSED LEVEL OF CONSCIOUSNESS [None]
  - OVERDOSE [None]
  - PARANOIA [None]
  - SUICIDE ATTEMPT [None]
